FAERS Safety Report 21575134 (Version 2)
Quarter: 2022Q4

REPORT INFORMATION
  Report Type: Spontaneous
  Country: CA (occurrence: CA)
  Receive Date: 20221110
  Receipt Date: 20221227
  Transmission Date: 20230112
  Serious: No
  Sender: FDA-Public Use
  Company Number: CA-CELLTRION INC.-2022CA018864

PATIENT

DRUGS (8)
  1. INFLECTRA [Suspect]
     Active Substance: INFLIXIMAB-DYYB
     Indication: Colitis ulcerative
     Dosage: 325 MG, Q0,2,6 WEEKS, THEN EVERY 8 WEEKS.
     Route: 042
     Dates: start: 20220419, end: 20220921
  2. INFLECTRA [Suspect]
     Active Substance: INFLIXIMAB-DYYB
     Dosage: 325 MG, Q0,2,6 WEEKS, THEN EVERY 8 WEEKS.
     Route: 042
     Dates: start: 20220921
  3. INFLECTRA [Suspect]
     Active Substance: INFLIXIMAB-DYYB
     Dosage: 325 MG, EVERY 4 WEEKS (SUPPOSED TO RECEIVE 330MG)
     Route: 042
     Dates: start: 20221116
  4. PENTASA [Concomitant]
     Active Substance: MESALAMINE
     Dosage: 2 G, 2X/DAY
     Route: 048
  5. PENTASA [Concomitant]
     Active Substance: MESALAMINE
     Dosage: 4 G, 1X/DAY, EVERY NIGHT
  6. PENTASA [Concomitant]
     Active Substance: MESALAMINE
     Dosage: UNK (BACK TO ENEMA)
     Dates: end: 2022
  7. PENTASA [Concomitant]
     Active Substance: MESALAMINE
     Dosage: 1 G, 1X/DAY, PER RECTUM EVERY NIGHT
     Route: 054
  8. PREDNISONE [Concomitant]
     Active Substance: PREDNISONE
     Dosage: MD TAPED OFF PREDNISONE

REACTIONS (5)
  - Off label use [Unknown]
  - Inappropriate schedule of product administration [Unknown]
  - Condition aggravated [Not Recovered/Not Resolved]
  - Defaecation urgency [Unknown]
  - Rectal tenesmus [Unknown]

NARRATIVE: CASE EVENT DATE: 20220101
